FAERS Safety Report 15030562 (Version 2)
Quarter: 2018Q3

REPORT INFORMATION
  Report Type: Spontaneous
  Country: US (occurrence: US)
  Receive Date: 20180619
  Receipt Date: 20180831
  Transmission Date: 20181010
  Serious: No
  Sender: FDA-Public Use
  Company Number: US-PFIZER INC-2018243021

PATIENT
  Age: 61 Year
  Sex: Female

DRUGS (1)
  1. MENEST [Suspect]
     Active Substance: ESTROGENS, ESTERIFIED
     Indication: HORMONE REPLACEMENT THERAPY
     Dosage: UNK, 1X/DAY (0.625 1 PO QD)
     Route: 048

REACTIONS (3)
  - Hot flush [Recovered/Resolved]
  - Mood altered [Recovered/Resolved]
  - Hyperhidrosis [Recovered/Resolved]
